FAERS Safety Report 5819952-8 (Version None)
Quarter: 2008Q3

REPORT INFORMATION
  Report Type: 
  Country: None (occurrence: None)
  Receive Date: 20080721
  Receipt Date: 20080710
  Transmission Date: 20090109
  Serious: Yes (Death, Life-Threatening)
  Sender: FDA-Public Use
  Company Number: 2008AL003788

PATIENT
  Age: 90 Year
  Sex: Male

DRUGS (5)
  1. DIGOXIN [Suspect]
     Indication: ATRIAL FIBRILLATION
     Dosage: 0.25MG DAILY PO
     Route: 048
  2. NORVASC [Concomitant]
  3. ARICEPT [Concomitant]
  4. VITAMIN B-12 [Concomitant]
  5. LEVAQUIN [Concomitant]

REACTIONS (2)
  - CARDIAC ARREST [None]
  - THERAPEUTIC AGENT TOXICITY [None]
